FAERS Safety Report 4820456-X (Version None)
Quarter: 2005Q4

REPORT INFORMATION
  Report Type: 
  Country: None (occurrence: None)
  Receive Date: 20051104
  Receipt Date: 20051025
  Transmission Date: 20060501
  Serious: Yes (Hospitalization)
  Sender: FDA-Public Use
  Company Number: PHBS2005JP15797

PATIENT

DRUGS (2)
  1. NEORAL [Suspect]
     Dosage: 4375 MG, ONCE/SINGLE
     Route: 048
  2. HYPNOTICS AND SEDATIVES [Suspect]

REACTIONS (5)
  - INTENTIONAL DRUG MISUSE [None]
  - LOSS OF CONSCIOUSNESS [None]
  - MULTIPLE DRUG OVERDOSE [None]
  - PNEUMONIA [None]
  - SUICIDE ATTEMPT [None]
